FAERS Safety Report 18496661 (Version 1)
Quarter: 2020Q4

REPORT INFORMATION
  Report Type: Spontaneous
  Country: CA (occurrence: CA)
  Receive Date: 20201112
  Receipt Date: 20201112
  Transmission Date: 20210114
  Serious: Yes (Other)
  Sender: FDA-Public Use
  Company Number: CA-JNJFOC-20201111743

PATIENT
  Age: 24 Year
  Sex: Male
  Weight: 86 kg

DRUGS (3)
  1. INFLIXIMAB, RECOMBINANT [Suspect]
     Active Substance: INFLIXIMAB
     Indication: CROHN^S DISEASE
     Route: 042
  2. ENTOCORT [Concomitant]
     Active Substance: BUDESONIDE
     Route: 065
  3. ESCITALOPRAM [Concomitant]
     Active Substance: ESCITALOPRAM OXALATE
     Route: 048

REACTIONS (9)
  - Asthenia [Unknown]
  - Condition aggravated [Unknown]
  - Inappropriate schedule of product administration [Unknown]
  - Muscle spasms [Unknown]
  - Impaired quality of life [Unknown]
  - Enterocolonic fistula [Unknown]
  - Intestinal fistula [Unknown]
  - Off label use [Unknown]
  - Product use issue [Unknown]
